FAERS Safety Report 5274414-4 (Version None)
Quarter: 2007Q1

REPORT INFORMATION
  Report Type: 
  Country: None (occurrence: None)
  Receive Date: 20070323
  Receipt Date: 20070313
  Transmission Date: 20070707
  Serious: Yes (Hospitalization, Other)
  Sender: FDA-Public Use
  Company Number: JP-PFIZER INC-2007015655

PATIENT
  Sex: Female
  Weight: 23.5 kg

DRUGS (3)
  1. ZITHROMAC [Suspect]
     Route: 048
     Dates: start: 20070219, end: 20070221
  2. ASPIRIN [Concomitant]
     Route: 048
  3. FERROMIA [Concomitant]
     Route: 048

REACTIONS (1)
  - WHITE BLOOD CELL COUNT DECREASED [None]
